FAERS Safety Report 6181975-X (Version None)
Quarter: 2009Q2

REPORT INFORMATION
  Report Type: 
  Country: None (occurrence: None)
  Receive Date: 20090505
  Receipt Date: 20090430
  Transmission Date: 20091009
  Serious: Yes (Life-Threatening, Hospitalization)
  Sender: FDA-Public Use
  Company Number: 236607J08USA

PATIENT
  Age: 28 Year
  Sex: Female
  Weight: 54.4316 kg

DRUGS (4)
  1. REBIF [Suspect]
     Indication: MULTIPLE SCLEROSIS
     Dosage: 44 MCG, 3 IN 1 WEEKS, SUBCUTANEOUS
     Route: 058
     Dates: start: 20070718
  2. BACLOFEN [Concomitant]
  3. TRAZODONE HCL [Concomitant]
  4. UNSPECIFIED MEDICATION (ALL OTHER NON-THERAPEUTIC PRODUCTS) [Concomitant]

REACTIONS (6)
  - ALCOHOL POISONING [None]
  - CONVULSION [None]
  - FALL [None]
  - HEAD INJURY [None]
  - HEMIPLEGIA [None]
  - SUBDURAL HAEMATOMA [None]
